FAERS Safety Report 6693161-5 (Version None)
Quarter: 2010Q2

REPORT INFORMATION
  Report Type: 
  Country: None (occurrence: None)
  Receive Date: 20100422
  Receipt Date: 20100413
  Transmission Date: 20101027
  Serious: Yes (Other)
  Sender: FDA-Public Use
  Company Number: FR-WYE-H14679710

PATIENT
  Age: 86 Year
  Sex: Female

DRUGS (12)
  1. CORDARONE [Suspect]
     Indication: ATRIAL FIBRILLATION
     Route: 048
     Dates: start: 20090401, end: 20100127
  2. TERCIAN [Concomitant]
  3. LOVENOX [Concomitant]
  4. IMOVANE [Concomitant]
  5. TRANXENE [Suspect]
     Indication: AGITATION
     Dosage: 0.5 DOSE FORM INCEEASED TO 1 DOSE FORM AT END OF DEC-2009 BEFORE STOPPED ON 25-JAN-2010
     Route: 048
  6. AVLOCARDYL [Concomitant]
  7. PROTEIN SUPPLEMENTS [Concomitant]
  8. LAMISIL [Concomitant]
  9. VALACICLOVIR [Concomitant]
  10. LANSOPRAZOLE [Concomitant]
  11. KARDEGIC [Concomitant]
  12. FORLAX [Concomitant]

REACTIONS (2)
  - FALL [None]
  - FEMORAL NECK FRACTURE [None]
